FAERS Safety Report 24292324 (Version 1)
Quarter: 2024Q3

REPORT INFORMATION
  Report Type: Spontaneous
  Country: US (occurrence: None)
  Receive Date: 20240905
  Receipt Date: 20240905
  Transmission Date: 20241016
  Serious: No
  Sender: Public
  Company Number: None

PATIENT
  Age: 73 Year
  Sex: Male

DRUGS (4)
  1. XDEMVY [Suspect]
     Active Substance: LOTILANER
     Indication: Demodex blepharitis
     Dosage: OTHER STRENGTH : .25% DROP;?FREQUENCY : TWICE A DAY;?
     Route: 047
     Dates: start: 20240726, end: 20240905
  2. ATORVASTATIN [Concomitant]
     Active Substance: ATORVASTATIN
  3. VITAMINS [Concomitant]
     Active Substance: VITAMINS
  4. METFORMIN [Concomitant]
     Active Substance: METFORMIN HYDROCHLORIDE

REACTIONS (3)
  - Pyrexia [None]
  - Vision blurred [None]
  - Therapy cessation [None]

NARRATIVE: CASE EVENT DATE: 20240815
